FAERS Safety Report 7637265-9 (Version None)
Quarter: 2011Q3

REPORT INFORMATION
  Report Type: 
  Country: None (occurrence: None)
  Receive Date: 20110726
  Receipt Date: 20110719
  Transmission Date: 20111222
  Serious: Yes (Other)
  Sender: FDA-Public Use
  Company Number: US-PFIZER INC-2011123098

PATIENT

DRUGS (1)
  1. XALATAN [Suspect]
     Dosage: ONE DROP, DAILY
     Route: 047

REACTIONS (2)
  - DRUG EFFECT DECREASED [None]
  - INTRAOCULAR PRESSURE INCREASED [None]
